FAERS Safety Report 6591407-5 (Version None)
Quarter: 2010Q1

REPORT INFORMATION
  Report Type: 
  Country: None (occurrence: None)
  Receive Date: 20100219
  Receipt Date: 20100209
  Transmission Date: 20100710
  Serious: Yes (Other)
  Sender: FDA-Public Use
  Company Number: US-AMGEN-QUU365730

PATIENT
  Sex: Female
  Weight: 67.2 kg

DRUGS (8)
  1. ENBREL [Suspect]
     Indication: RHEUMATOID ARTHRITIS
     Route: 058
     Dates: start: 20021213, end: 20090731
  2. NEULASTA [Suspect]
     Indication: DRUG USE FOR UNKNOWN INDICATION
     Dates: start: 20090824
  3. METHOTREXATE [Suspect]
     Dates: start: 19940501
  4. PREDNISONE [Concomitant]
  5. FOLIC ACID [Concomitant]
  6. FISH OIL [Concomitant]
  7. LOPRESSOR [Concomitant]
  8. BENICAR [Concomitant]

REACTIONS (11)
  - BODY TEMPERATURE INCREASED [None]
  - BREATH SOUNDS ABNORMAL [None]
  - BURNING SENSATION [None]
  - FELTY'S SYNDROME [None]
  - LEUKOPENIA [None]
  - NEUTROPENIA [None]
  - OEDEMA PERIPHERAL [None]
  - PNEUMONIA [None]
  - RASH ERYTHEMATOUS [None]
  - SPLENOMEGALY [None]
  - THROMBOCYTOPENIA [None]
